FAERS Safety Report 6191257-8 (Version None)
Quarter: 2009Q2

REPORT INFORMATION
  Report Type: 
  Country: None (occurrence: None)
  Receive Date: 20090513
  Receipt Date: 20090513
  Transmission Date: 20091009
  Serious: Yes (Other)
  Sender: FDA-Public Use
  Company Number: None

PATIENT
  Sex: Female
  Weight: 56.6996 kg

DRUGS (1)
  1. CARBIDOPA + LEVODOPA [Suspect]
     Indication: RESTLESS LEGS SYNDROME
     Dosage: 1 TAB H.S. P.O.
     Route: 048
     Dates: start: 20090407

REACTIONS (9)
  - ASTHENIA [None]
  - CONFUSIONAL STATE [None]
  - DIARRHOEA [None]
  - DIZZINESS [None]
  - DYSPEPSIA [None]
  - FEAR [None]
  - HOT FLUSH [None]
  - THERAPEUTIC RESPONSE DECREASED [None]
  - VOMITING [None]
